FAERS Safety Report 5001942-9 (Version None)
Quarter: 2006Q2

REPORT INFORMATION
  Report Type: 
  Country: None (occurrence: None)
  Receive Date: 20060515
  Receipt Date: 20051005
  Transmission Date: 20061013
  Serious: Yes (Hospitalization, Disabling)
  Sender: FDA-Public Use
  Company Number: US-MERCK-0510USA03931

PATIENT
  Age: 56 Year
  Sex: Male
  Weight: 136 kg

DRUGS (9)
  1. VIOXX [Suspect]
     Indication: ARTHRALGIA
     Route: 048
     Dates: start: 19990101, end: 20040224
  2. VIOXX [Suspect]
     Route: 048
  3. GLIPIZIDE [Concomitant]
     Route: 065
  4. INDAPAMIDE [Concomitant]
     Route: 065
     Dates: start: 20030401
  5. METFORMIN [Concomitant]
     Route: 065
  6. LIPITOR [Concomitant]
     Route: 065
     Dates: start: 20000201, end: 20040101
  7. ISOSORBIDE MONONITRATE [Concomitant]
     Route: 065
  8. PRAZOSIN HYDROCHLORIDE [Concomitant]
     Route: 048
  9. ECOTRIN [Concomitant]
     Route: 048

REACTIONS (23)
  - ACUTE MYOCARDIAL INFARCTION [None]
  - ANAEMIA [None]
  - ARTHROPATHY [None]
  - ATRIOVENTRICULAR BLOCK FIRST DEGREE [None]
  - CARDIAC DISORDER [None]
  - CARDIAC FAILURE CONGESTIVE [None]
  - CARDIOGENIC SHOCK [None]
  - CARPAL TUNNEL SYNDROME [None]
  - CORONARY ARTERY DISEASE [None]
  - DYSPEPSIA [None]
  - HAEMORRHOIDS [None]
  - HEAD INJURY [None]
  - HYPERTENSION [None]
  - ISCHAEMIC CARDIOMYOPATHY [None]
  - LOSS OF CONSCIOUSNESS [None]
  - MUSCLE STRAIN [None]
  - OEDEMA PERIPHERAL [None]
  - OSTEOARTHRITIS [None]
  - PARAESTHESIA [None]
  - RENAL FAILURE ACUTE [None]
  - SYNCOPE [None]
  - SYNCOPE VASOVAGAL [None]
  - ULNAR NERVE INJURY [None]
